FAERS Safety Report 9459870 (Version 2)
Quarter: 2014Q1

REPORT INFORMATION
  Report Type: Spontaneous
  Country: US (occurrence: US)
  Receive Date: 20130815
  Receipt Date: 20140128
  Transmission Date: 20141002
  Serious: Yes (Hospitalization)
  Sender: FDA-Public Use
  Company Number: US-BAYER-2013-097939

PATIENT
  Age: 28 Year
  Sex: Female
  Weight: 96.15 kg

DRUGS (11)
  1. MIRENA [Suspect]
     Indication: CONTRACEPTION
     Dosage: 20 MCG/24HR, CONT
     Route: 015
     Dates: start: 20100416, end: 20111020
  2. MIRENA [Suspect]
     Indication: CONTRACEPTION
     Dosage: 20 MCG/24HR, CONT
     Route: 015
     Dates: start: 20111020
  3. LORATAB [Concomitant]
     Indication: BACK PAIN
     Dosage: 5 MG, BID
     Dates: start: 2007
  4. FLEXERIL [Concomitant]
     Indication: INTERVERTEBRAL DISC PROTRUSION
     Dosage: UNK
     Dates: start: 2007
  5. BACLOFEN [Concomitant]
     Indication: BACK INJURY
     Dosage: UNK
     Dates: start: 2007
  6. OXYCODONE [Concomitant]
     Indication: BACK INJURY
     Dosage: UNK
     Dates: start: 2007
  7. PERCOCET [Concomitant]
     Dosage: 5 MG, 2 PILLS AT NIGHT
  8. FIORICET [Concomitant]
  9. IMITREX [Concomitant]
  10. AMITRIPTYLINE [Concomitant]
  11. TEMAZEPAM [Concomitant]

REACTIONS (10)
  - Uterine perforation [None]
  - Pelvic pain [None]
  - Pregnancy with contraceptive device [None]
  - Drug ineffective [None]
  - Uterine adhesions [None]
  - Injury [None]
  - Emotional distress [None]
  - Depression [None]
  - Anxiety [None]
  - Device issue [None]
